FAERS Safety Report 14377958 (Version 1)
Quarter: 2018Q1

REPORT INFORMATION
  Report Type: Spontaneous
  Country: US (occurrence: US)
  Receive Date: 20180111
  Receipt Date: 20180111
  Transmission Date: 20180509
  Serious: Yes (Hospitalization, Other)
  Sender: FDA-Public Use
  Company Number: US-BAUSCH-BL-2017-031107

PATIENT
  Sex: Male

DRUGS (5)
  1. MIRTAZAPINE. [Concomitant]
     Active Substance: MIRTAZAPINE
     Indication: INSOMNIA
     Dosage: DISINTEGRATING TABLET
     Route: 060
     Dates: start: 20171211
  2. CLONAZEPAM. [Concomitant]
     Active Substance: CLONAZEPAM
     Indication: AGGRESSION
     Route: 060
     Dates: start: 20171211
  3. MIRTAZAPINE. [Concomitant]
     Active Substance: MIRTAZAPINE
     Indication: PANIC ATTACK
  4. ATIVAN [Suspect]
     Active Substance: LORAZEPAM
     Indication: ANXIETY
     Route: 048
     Dates: start: 2017, end: 20171211
  5. ATIVAN [Suspect]
     Active Substance: LORAZEPAM
     Dosage: ACCIDENTALLY RECEIVED A DOUBLE DOSE
     Route: 065

REACTIONS (16)
  - Abnormal dreams [Recovered/Resolved]
  - Suicidal ideation [Recovered/Resolved]
  - Overdose [Unknown]
  - Abnormal behaviour [Not Recovered/Not Resolved]
  - Wrong dose [Unknown]
  - Balance disorder [Not Recovered/Not Resolved]
  - Palpitations [Recovering/Resolving]
  - Hallucination [Recovering/Resolving]
  - Chest pain [Not Recovered/Not Resolved]
  - Disorientation [Recovering/Resolving]
  - Dyspnoea [Recovering/Resolving]
  - Fatigue [Recovering/Resolving]
  - Memory impairment [Recovering/Resolving]
  - Anxiety [Recovering/Resolving]
  - Parkinson^s disease [Unknown]
  - Aggression [Recovering/Resolving]
